FAERS Safety Report 9652518 (Version 2)
Quarter: 2013Q4

REPORT INFORMATION
  Report Type: Spontaneous
  Country: CA (occurrence: CA)
  Receive Date: 20131029
  Receipt Date: 20131118
  Transmission Date: 20140711
  Serious: Yes (Disabling, Other)
  Sender: FDA-Public Use
  Company Number: CA-NAPPMUNDI-CAN-2013-0004515

PATIENT
  Sex: Female

DRUGS (1)
  1. MORPHINE SULFATE [Suspect]
     Indication: HYSTERECTOMY
     Dosage: UNK
     Route: 042
     Dates: start: 1977, end: 1977

REACTIONS (1)
  - Psychotic disorder [Not Recovered/Not Resolved]
